FAERS Safety Report 15315788 (Version 1)
Quarter: 2018Q3

REPORT INFORMATION
  Report Type: Spontaneous
  Country: US (occurrence: US)
  Receive Date: 20180815
  Receipt Date: 20180815
  Transmission Date: 20181010
  Serious: Yes (Hospitalization)
  Sender: FDA-Public Use
  Company Number: None

PATIENT
  Age: 56 Year
  Sex: Male

DRUGS (10)
  1. IPRATROPIUM INH SOL 0.02% [Concomitant]
  2. BROVANA [Concomitant]
     Active Substance: ARFORMOTEROL TARTRATE
  3. BACLOFEN 20 MG TAB [Concomitant]
  4. HYDROXYZINE PAM 50 MG CAP [Concomitant]
  5. LISINOPRIL 10 MG TAB [Concomitant]
  6. TRAZODONE 50 MG TAB [Concomitant]
  7. LEVOTHYROXINE 125 MCG [Concomitant]
     Active Substance: LEVOTHYROXINE SODIUM
  8. SIMVASTATIN 40 MG TAB [Concomitant]
  9. TOBRAMYCIN NEBULIZER SOLUTION [Suspect]
     Active Substance: TOBRAMYCIN
     Indication: BRONCHIECTASIS
     Route: 055
     Dates: start: 20160719
  10. FLUOXETINE 20MG/5 ML [Concomitant]

REACTIONS (1)
  - Hospitalisation [None]

NARRATIVE: CASE EVENT DATE: 20180810
